FAERS Safety Report 7678296-2 (Version None)
Quarter: 2011Q3

REPORT INFORMATION
  Report Type: 
  Country: None (occurrence: None)
  Receive Date: 20110811
  Receipt Date: 20110803
  Transmission Date: 20111222
  Serious: Yes (Death, Other)
  Sender: FDA-Public Use
  Company Number: PHHY2011CH65985

PATIENT
  Age: 64 Year
  Sex: Female

DRUGS (13)
  1. TRANSIPEG [Concomitant]
     Dosage: UNK UKN, UNK
     Route: 048
  2. ZESTRIL [Concomitant]
     Dosage: 5 MG
     Route: 048
  3. TACROLIMUS [Concomitant]
     Dosage: UNK UKN, UNK
     Route: 048
     Dates: end: 20110405
  4. MOTILIUM [Concomitant]
     Dosage: 30 MG
  5. TARGOCID [Concomitant]
     Dosage: 200 MG
     Route: 042
     Dates: end: 20110405
  6. PREDNISONE [Concomitant]
     Dosage: 15 MG
     Route: 048
  7. NEORAL [Suspect]
     Dosage: 120 MG
     Route: 048
     Dates: start: 20091201, end: 20110405
  8. CELLCEPT [Concomitant]
     Dosage: 500 MG
     Route: 048
  9. VALCYTE [Concomitant]
     Dosage: 900 MG
     Route: 048
     Dates: end: 20110405
  10. ZANTAC [Concomitant]
     Dosage: 150 MG
     Route: 048
  11. NEXIUM [Concomitant]
     Dosage: 80 MG
     Route: 048
  12. SPORANOX [Concomitant]
     Dosage: 200 MG, UNK
     Route: 048
  13. BACTRIM [Concomitant]
     Dosage: 960 MG
     Route: 048

REACTIONS (20)
  - PULMONARY FIBROSIS [None]
  - RENAL FAILURE ACUTE [None]
  - BLOOD CREATININE INCREASED [None]
  - INFECTION [None]
  - GLOMERULAR FILTRATION RATE DECREASED [None]
  - CARDIOMEGALY [None]
  - OSTEONECROSIS [None]
  - NECROSIS [None]
  - LUNG DISORDER [None]
  - INTESTINAL ISCHAEMIA [None]
  - HAEMORRHAGE [None]
  - GENERAL PHYSICAL HEALTH DETERIORATION [None]
  - ATRIAL SEPTAL DEFECT [None]
  - THROMBOTIC MICROANGIOPATHY [None]
  - ISCHAEMIA [None]
  - MULTI-ORGAN FAILURE [None]
  - GASTROINTESTINAL ISCHAEMIA [None]
  - SPLENIC NECROSIS [None]
  - TRANSPLANT REJECTION [None]
  - RENAL INFARCT [None]
